FAERS Safety Report 15348113 (Version 1)
Quarter: 2018Q3

REPORT INFORMATION
  Report Type: Report from Study
  Country: TN (occurrence: TN)
  Receive Date: 20180904
  Receipt Date: 20180904
  Transmission Date: 20181010
  Serious: Yes (Death, Hospitalization)
  Sender: FDA-Public Use
  Company Number: TN-SANIK-2018SA239801AA

PATIENT
  Age: 77 Year
  Sex: Male

DRUGS (9)
  1. DETENSIEL [BISOPROLOL FUMARATE] [Concomitant]
     Dosage: UNK, UNK
  2. ESORAL [Concomitant]
     Active Substance: ESOMEPRAZOLE MAGNESIUM
     Dosage: UNK, UNK
  3. CLOPIDOGREL BISULFATE. [Suspect]
     Active Substance: CLOPIDOGREL BISULFATE
     Dosage: 75 MG, QD
     Route: 048
     Dates: start: 20170311
  4. CORDARONE [Concomitant]
     Active Substance: AMIODARONE HYDROCHLORIDE
     Dosage: UNK, UNK
  5. RAPRIL [RAMIPRIL] [Concomitant]
     Dosage: UNK, UNK
  6. ASPEGIC [ACETYLSALICYLIC ACID] [Concomitant]
     Dosage: UNK, UNK
  7. LASILIX [FUROSEMIDE] [Concomitant]
     Dosage: UNK, UNK
  8. TAVASTOR [Concomitant]
     Dosage: UNK, UNK
  9. INSULIN [Concomitant]
     Active Substance: INSULIN NOS
     Dosage: UNK, UNK

REACTIONS (3)
  - Acute pulmonary oedema [Unknown]
  - Bronchitis [Unknown]
  - Cardiac failure [Fatal]

NARRATIVE: CASE EVENT DATE: 20180616
